FAERS Safety Report 20699994 (Version 1)
Quarter: 2022Q2

REPORT INFORMATION
  Report Type: Spontaneous
  Country: US (occurrence: None)
  Receive Date: 20220409
  Receipt Date: 20220409
  Transmission Date: 20220720
  Serious: Yes (Other)
  Sender: FDA-Public Use
  Company Number: None

PATIENT
  Age: 75 Year
  Sex: Male
  Weight: 68.4 kg

DRUGS (15)
  1. RANOLAZINE [Suspect]
     Active Substance: RANOLAZINE
     Indication: Chest discomfort
     Dosage: OTHER QUANTITY : 1 CAPSULE(S);?FREQUENCY : TWICE A DAY;?
     Route: 048
     Dates: start: 20220407, end: 20220408
  2. SYNTHROID [Concomitant]
     Active Substance: LEVOTHYROXINE SODIUM
  3. PLAVIX [Concomitant]
     Active Substance: CLOPIDOGREL BISULFATE
  4. LISINOPRIL [Concomitant]
     Active Substance: LISINOPRIL
  5. METOPROLOL [Concomitant]
     Active Substance: METOPROLOL
  6. BUPROPION [Concomitant]
     Active Substance: BUPROPION
  7. LAMOTRIGINE [Concomitant]
     Active Substance: LAMOTRIGINE
  8. TRAMADOL [Concomitant]
     Active Substance: TRAMADOL
  9. CLONAZEPAM [Concomitant]
     Active Substance: CLONAZEPAM
  10. TRAZODONE [Concomitant]
     Active Substance: TRAZODONE HYDROCHLORIDE
  11. VITAMIN D2 [Concomitant]
     Active Substance: ERGOCALCIFEROL
  12. VITAMIN B12 [Concomitant]
     Active Substance: CYANOCOBALAMIN
  13. generic centrum [Concomitant]
  14. FISH OIL [Concomitant]
     Active Substance: FISH OIL
  15. NIACIN [Concomitant]
     Active Substance: NIACIN

REACTIONS (7)
  - Dyspnoea exertional [None]
  - Blood pressure increased [None]
  - Heart rate increased [None]
  - Fibrin D dimer increased [None]
  - Myocardial infarction [None]
  - Thrombosis [None]
  - Drug interaction [None]

NARRATIVE: CASE EVENT DATE: 20220408
